FAERS Safety Report 15901010 (Version 1)
Quarter: 2019Q1

REPORT INFORMATION
  Report Type: Spontaneous
  Country: JP (occurrence: JP)
  Receive Date: 20190201
  Receipt Date: 20190201
  Transmission Date: 20190417
  Serious: Yes (Hospitalization)
  Sender: FDA-Public Use
  Company Number: JP-MALLINCKRODT-T201707102

PATIENT
  Age: 9 Year
  Sex: Female

DRUGS (34)
  1. AMITIZA [Suspect]
     Active Substance: LUBIPROSTONE
     Indication: CYSTIC FIBROSIS PANCREATIC
     Dosage: 24 ?G, QD
     Route: 048
     Dates: start: 20161222
  2. BIOFERMIN [Concomitant]
     Active Substance: BACILLUS SUBTILIS\LACTOBACILLUS ACIDOPHILUS\STREPTOCOCCUS FAECAIS
     Indication: CYSTIC FIBROSIS PANCREATIC
     Dosage: 1 G, UNK
     Route: 048
     Dates: start: 20100209
  3. VITAMEDIN [Concomitant]
     Active Substance: CYANOCOBALAMIN\PYRIDOXINE HYDROCHLORIDE\THIAMINE
     Indication: CYSTIC FIBROSIS PANCREATIC
     Dosage: 2 DF, UNK
     Route: 048
     Dates: start: 20160606
  4. FOSFOMYCIN SODIUM [Concomitant]
     Active Substance: FOSFOMYCIN SODIUM
     Indication: CYSTIC FIBROSIS PANCREATIC
     Dosage: 3 G, UNK
     Route: 048
     Dates: start: 20161021, end: 20161025
  5. MEROPENEM. [Concomitant]
     Active Substance: MEROPENEM
     Indication: CYSTIC FIBROSIS PANCREATIC
     Dosage: 1.5 G, UNK
     Route: 041
     Dates: start: 20170215, end: 20170220
  6. ACELIO [Concomitant]
     Active Substance: ACETAMINOPHEN
     Indication: CYSTIC FIBROSIS PANCREATIC
     Dosage: 250 MG, UNK
     Route: 042
     Dates: start: 20170216, end: 20170217
  7. ACELIO [Concomitant]
     Active Substance: ACETAMINOPHEN
     Dosage: UNK
     Route: 042
     Dates: start: 20170703, end: 20170704
  8. BAKTAR [Concomitant]
     Active Substance: SULFAMETHOXAZOLE\TRIMETHOPRIM
     Indication: DISTAL INTESTINAL OBSTRUCTION SYNDROME
     Dosage: 2 DF, UNK
     Route: 048
     Dates: start: 20161111, end: 20161115
  9. ASVERIN (TIPEPIDINE HIBENZATE) [Concomitant]
     Active Substance: TIPEPIDINE HIBENZATE
     Indication: BRONCHITIS
     Dosage: 0.5 G, UNK
     Route: 048
     Dates: start: 20160916, end: 20160920
  10. BAKTAR [Concomitant]
     Active Substance: SULFAMETHOXAZOLE\TRIMETHOPRIM
     Indication: DISTAL INTESTINAL OBSTRUCTION SYNDROME
     Dosage: 2 G, UNK
     Route: 048
     Dates: start: 20170718, end: 20170726
  11. ERYTHROCIN [Concomitant]
     Active Substance: ERYTHROMYCIN LACTOBIONATE
     Indication: CYSTIC FIBROSIS PANCREATIC
     Dosage: 300 MG, UNK
     Route: 048
     Dates: start: 21030309
  12. JUVELA [Concomitant]
     Active Substance: .ALPHA.-TOCOPHEROL\RETINOL
     Indication: CYSTIC FIBROSIS PANCREATIC
     Dosage: 0.8 G, UNK
     Route: 048
     Dates: start: 20150203, end: 20170605
  13. LAC-B GRANULAR POWDER N [Concomitant]
     Indication: CYSTIC FIBROSIS PANCREATIC
     Dosage: 1 G, UNK
     Route: 048
     Dates: start: 20100209
  14. MIYA-BM [Concomitant]
     Active Substance: CLOSTRIDIUM BUTYRICUM SPORES STRAIN M-55
     Indication: CYSTIC FIBROSIS PANCREATIC
     Dosage: 1 G, UNK
     Route: 048
     Dates: start: 20100309
  15. MUCODYNE [Concomitant]
     Active Substance: CARBOCYSTEINE
     Indication: CYSTIC FIBROSIS PANCREATIC
     Dosage: 0.4 G, UNK
     Route: 048
     Dates: start: 20160308
  16. SOLACET D [Concomitant]
     Indication: CYSTIC FIBROSIS PANCREATIC
     Dosage: 250 ML, UNK
     Route: 041
     Dates: start: 20170215, end: 20170215
  17. ACETOKEEP 3G [Concomitant]
     Indication: CYSTIC FIBROSIS PANCREATIC
     Dosage: 1000 ML, UNK
     Route: 041
     Dates: start: 20170215, end: 20170220
  18. CEFOTAXIME [Concomitant]
     Active Substance: CEFOTAXIME SODIUM
     Indication: DISTAL INTESTINAL OBSTRUCTION SYNDROME
  19. LIPACREON [Suspect]
     Active Substance: PANCRELIPASE
     Indication: CYSTIC FIBROSIS PANCREATIC
     Dosage: UNK
     Route: 048
     Dates: start: 20161025
  20. PANVITAN [Concomitant]
     Indication: CYSTIC FIBROSIS PANCREATIC
     Dosage: 1 G, UNK
     Route: 048
     Dates: start: 20150203, end: 20170605
  21. SODIUM CHLORIDE. [Concomitant]
     Active Substance: SODIUM CHLORIDE
     Indication: CYSTIC FIBROSIS PANCREATIC
     Dosage: 2 ML, UNK
     Route: 055
     Dates: start: 20160308
  22. BISOLVON [Concomitant]
     Active Substance: BROMHEXINE HYDROCHLORIDE
     Indication: CYSTIC FIBROSIS PANCREATIC
     Dosage: 0.1 G, UNK
     Route: 048
     Dates: start: 20160308
  23. CEFOTAXIME [Concomitant]
     Active Substance: CEFOTAXIME SODIUM
     Indication: CYSTIC FIBROSIS PANCREATIC
     Dosage: 3 G, UNK
     Route: 042
     Dates: start: 20170703, end: 20170706
  24. TOBI [Concomitant]
     Active Substance: TOBRAMYCIN
     Indication: CYSTIC FIBROSIS PANCREATIC
     Dosage: 2 DF, UNK
     Route: 055
     Dates: start: 20180623
  25. LIPACREON [Suspect]
     Active Substance: PANCRELIPASE
     Indication: CYSTIC FIBROSIS PANCREATIC
     Dosage: UNK
     Route: 048
     Dates: start: 20160620, end: 20161024
  26. MUCOSAL [Concomitant]
     Indication: CYSTIC FIBROSIS PANCREATIC
     Dosage: 0.6 G, UNK
     Route: 048
     Dates: start: 20160308
  27. JUVELA N [Concomitant]
     Active Substance: TOCOPHERYL NICOTINATE, D-.ALPHA.
     Indication: CYSTIC FIBROSIS PANCREATIC
     Dosage: 200 MG, UNK
     Route: 048
     Dates: start: 20170606
  28. OZEX [Concomitant]
     Active Substance: TOSUFLOXACIN TOSYLATE
     Indication: BRONCHITIS
     Dosage: 300 MG, UNK
     Route: 048
     Dates: start: 20160916, end: 20160920
  29. MAGMITT [Concomitant]
     Active Substance: MAGNESIUM OXIDE
     Indication: CYSTIC FIBROSIS PANCREATIC
     Dosage: 1.5 G, UNK
     Route: 048
     Dates: start: 20161018, end: 20161219
  30. SOLACET D [Concomitant]
     Indication: DISTAL INTESTINAL OBSTRUCTION SYNDROME
     Dosage: UNK
     Route: 041
     Dates: start: 20170703, end: 20170703
  31. PULMOZYME [Concomitant]
     Active Substance: DORNASE ALFA
     Indication: CYSTIC FIBROSIS PANCREATIC
     Dosage: 2.5 MG, UNK
     Route: 055
     Dates: start: 20120807
  32. TULOBUTEROL [Concomitant]
     Active Substance: TULOBUTEROL
     Indication: BRONCHITIS
     Dosage: 2 MG, UNK
     Route: 062
     Dates: start: 20160916, end: 20160920
  33. ACETOKEEP 3G [Concomitant]
     Indication: DISTAL INTESTINAL OBSTRUCTION SYNDROME
     Dosage: UNK
     Route: 041
     Dates: start: 20170703, end: 20170706
  34. XYZAL [Concomitant]
     Active Substance: LEVOCETIRIZINE DIHYDROCHLORIDE
     Dosage: 5 MG, UNK
     Route: 048
     Dates: start: 20171114

REACTIONS (4)
  - Bronchitis [Recovered/Resolved]
  - Off label use [Not Recovered/Not Resolved]
  - Distal intestinal obstruction syndrome [Recovered/Resolved]
  - Distal intestinal obstruction syndrome [Recovered/Resolved]

NARRATIVE: CASE EVENT DATE: 20161018
